FAERS Safety Report 7694231-5 (Version None)
Quarter: 2011Q3

REPORT INFORMATION
  Report Type: 
  Country: None (occurrence: None)
  Receive Date: 20110819
  Receipt Date: 20110810
  Transmission Date: 20111222
  Serious: Yes (Life-Threatening, Hospitalization, Disabling, Other)
  Sender: FDA-Public Use
  Company Number: US-GLAXOSMITHKLINE-A0924929A

PATIENT
  Age: 10 Year
  Sex: Female

DRUGS (5)
  1. DEPAKOTE [Suspect]
     Indication: BIPOLAR DISORDER
     Dosage: 250MG THREE TIMES PER DAY
     Route: 048
     Dates: start: 20040101, end: 20061104
  2. LAMICTAL [Suspect]
     Indication: BIPOLAR DISORDER
     Dosage: 25MG PER DAY
     Route: 048
     Dates: start: 20061001, end: 20061023
  3. ARIPIPRAZOLE [Concomitant]
  4. RISPERDAL [Concomitant]
     Indication: BIPOLAR DISORDER
     Dosage: 2MG THREE TIMES PER DAY
     Route: 048
     Dates: start: 20020101, end: 20061104
  5. AMOXICILLIN [Concomitant]
     Indication: STREPTOCOCCAL INFECTION
     Dates: start: 20061031, end: 20061101

REACTIONS (35)
  - STEVENS-JOHNSON SYNDROME [None]
  - RASH [None]
  - DECREASED APPETITE [None]
  - ACTIVATED PARTIAL THROMBOPLASTIN TIME PROLONGED [None]
  - BLOOD BILIRUBIN INCREASED [None]
  - APPARENT LIFE THREATENING EVENT [None]
  - FIBRIN D DIMER INCREASED [None]
  - HAEMOLYSIS [None]
  - C-REACTIVE PROTEIN INCREASED [None]
  - BLOOD LACTATE DEHYDROGENASE INCREASED [None]
  - PYREXIA [None]
  - GENERAL PHYSICAL HEALTH DETERIORATION [None]
  - LEARNING DISABILITY [None]
  - OEDEMA PERIPHERAL [None]
  - LETHARGY [None]
  - LIVER FUNCTION TEST ABNORMAL [None]
  - FEELING HOT [None]
  - LIVER DISORDER [None]
  - UNRESPONSIVE TO STIMULI [None]
  - DISSEMINATED INTRAVASCULAR COAGULATION [None]
  - CONDITION AGGRAVATED [None]
  - DRUG HYPERSENSITIVITY [None]
  - SLOW RESPONSE TO STIMULI [None]
  - BLISTER [None]
  - DRUG RASH WITH EOSINOPHILIA AND SYSTEMIC SYMPTOMS [None]
  - DEPRESSED LEVEL OF CONSCIOUSNESS [None]
  - FATIGUE [None]
  - SKIN EXFOLIATION [None]
  - CONJUNCTIVITIS [None]
  - PROTHROMBIN TIME PROLONGED [None]
  - INTERNATIONAL NORMALISED RATIO INCREASED [None]
  - ILL-DEFINED DISORDER [None]
  - LIP ULCERATION [None]
  - HYPERSENSITIVITY [None]
  - DRUG INTERACTION [None]
